FAERS Safety Report 4697935-1 (Version None)
Quarter: 2005Q2

REPORT INFORMATION
  Report Type: 
  Country: None (occurrence: None)
  Receive Date: 20050623
  Receipt Date: 20050616
  Transmission Date: 20051028
  Serious: Yes (Death, Life-Threatening, Hospitalization)
  Sender: FDA-Public Use
  Company Number: MX-BOEHRINGER INGELHEIM PHARMACEUTICALS, INC.-2005-BP-10196MX

PATIENT
  Age: 64 Year
  Sex: Male

DRUGS (2)
  1. MOBICOX 15.0 MG TABLETS [Suspect]
     Indication: RHEUMATOID ARTHRITIS
     Route: 030
     Dates: start: 20041203, end: 20041203
  2. COMBIVENT [Suspect]
     Indication: ACUTE PULMONARY OEDEMA
     Route: 055
     Dates: start: 20041201

REACTIONS (7)
  - ACUTE PULMONARY OEDEMA [None]
  - BLOOD GLUCOSE INCREASED [None]
  - BLOOD URINE PRESENT [None]
  - DEPRESSION [None]
  - MORBID THOUGHTS [None]
  - REFUSAL OF TREATMENT BY PATIENT [None]
  - RENAL FAILURE CHRONIC [None]
